FAERS Safety Report 11057817 (Version 1)
Quarter: 2015Q2

REPORT INFORMATION
  Report Type: Spontaneous
  Country: DE (occurrence: DE)
  Receive Date: 20150423
  Receipt Date: 20150423
  Transmission Date: 20150821
  Serious: Yes (Hospitalization)
  Sender: FDA-Public Use
  Company Number: DE-MERCK-1504DEU017899

PATIENT
  Age: 10 Month
  Sex: Male

DRUGS (1)
  1. CHORIONIC GONADOTROPHIN [Suspect]
     Active Substance: CHORIOGONADOTROPIN ALFA
     Indication: CRYPTORCHISM
     Route: 030

REACTIONS (1)
  - Vomiting [Recovered/Resolved]

NARRATIVE: CASE EVENT DATE: 20150415
